FAERS Safety Report 16997380 (Version 1)
Quarter: 2019Q4

REPORT INFORMATION
  Report Type: Spontaneous
  Country: US (occurrence: US)
  Receive Date: 20191106
  Receipt Date: 20191106
  Transmission Date: 20200122
  Serious: No
  Sender: FDA-Public Use
  Company Number: US-LUPIN PHARMACEUTICALS INC.-2018-07547

PATIENT
  Age: 13 Year
  Sex: Male

DRUGS (1)
  1. TOPIRAMATE. [Suspect]
     Active Substance: TOPIRAMATE
     Indication: TIC
     Dosage: UNK
     Route: 065

REACTIONS (2)
  - False positive investigation result [Recovered/Resolved]
  - Sweat test abnormal [Recovered/Resolved]
